FAERS Safety Report 7889266-3 (Version None)
Quarter: 2011Q4

REPORT INFORMATION
  Report Type: 
  Country: None (occurrence: None)
  Receive Date: 20111103
  Receipt Date: 20111025
  Transmission Date: 20120403
  Serious: Yes (Hospitalization)
  Sender: FDA-Public Use
  Company Number: US-MERCK-1110USA03903

PATIENT
  Age: 67 Year
  Sex: Male

DRUGS (11)
  1. LORAZEPAM [Concomitant]
     Route: 065
  2. PLAVIX [Concomitant]
     Route: 065
  3. ASPIRIN [Concomitant]
     Route: 065
  4. SINGULAIR [Suspect]
     Indication: DYSPNOEA
     Route: 048
     Dates: start: 20050101
  5. STADOL [Suspect]
     Route: 065
  6. TIMOLOL [Concomitant]
     Route: 065
  7. SINGULAIR [Suspect]
     Indication: HYPERSENSITIVITY
     Route: 048
     Dates: start: 20050101
  8. CARVEDILOL [Concomitant]
     Route: 065
  9. ALPHAGAN [Concomitant]
     Route: 065
  10. TRAVATAN [Concomitant]
     Route: 065
  11. ZOCOR [Concomitant]
     Route: 048

REACTIONS (5)
  - FEELING ABNORMAL [None]
  - SOMNOLENCE [None]
  - PROSTATIC DISORDER [None]
  - PARANOIA [None]
  - CARDIAC DISORDER [None]
